FAERS Safety Report 8593603 (Version 5)
Quarter: 2012Q4

REPORT INFORMATION
  Report Type: 
  Country: JP (occurrence: JP)
  Receive Date: 20120604
  Receipt Date: 20120925
  Transmission Date: 20130627
  Serious: Yes (Death, Hospitalization, Other)
  Sender: FDA-Public Use
  Company Number: JP-JNJFOC-20120600373

PATIENT
  Age: 87 Year
  Sex: Male
  Weight: 43 kg

DRUGS (3)
  1. TRAMCET [Suspect]
     Indication: PAIN
     Dosage: 3 dose forms,1 per 1 day
     Route: 048
     Dates: start: 20120407, end: 20120409
  2. TRAMCET [Suspect]
     Indication: BACK PAIN
     Dosage: 3 dose forms,1 per 1 day
     Route: 048
     Dates: start: 20120407, end: 20120409
  3. MOHRUS [Concomitant]
     Indication: PAIN
     Dosage: 40 mg, 1 per 1 day
     Route: 062
     Dates: start: 20120303, end: 20120408

REACTIONS (4)
  - Pneumonia aspiration [Fatal]
  - Depressed level of consciousness [Not Recovered/Not Resolved]
  - Dizziness [Not Recovered/Not Resolved]
  - Gait disturbance [Not Recovered/Not Resolved]
